FAERS Safety Report 18485529 (Version 2)
Quarter: 2020Q4

REPORT INFORMATION
  Report Type: Spontaneous
  Country: US (occurrence: US)
  Receive Date: 20201110
  Receipt Date: 20201208
  Transmission Date: 20210114
  Serious: Yes (Hospitalization)
  Sender: FDA-Public Use
  Company Number: US-GW PHARMA-202010USGW03678

PATIENT

DRUGS (5)
  1. ONFI [Concomitant]
     Active Substance: CLOBAZAM
     Indication: PRODUCT USED FOR UNKNOWN INDICATION
     Dosage: 25 MILLIGRAM, QD (15 MG AM, 10 MG PM)
     Route: 065
  2. EPIDIOLEX [Suspect]
     Active Substance: CANNABIDIOL
     Indication: PARTIAL SEIZURES
     Dosage: 400 MILLIGRAM, BID (FIRST SHIPPED ON 12 DEC 2018)
     Route: 048
     Dates: start: 201812
  3. EPIDIOLEX [Suspect]
     Active Substance: CANNABIDIOL
     Indication: EPILEPSY
  4. EPIDIOLEX [Suspect]
     Active Substance: CANNABIDIOL
     Indication: FOCAL DYSCOGNITIVE SEIZURES
  5. LAMICTAL [Concomitant]
     Active Substance: LAMOTRIGINE
     Indication: PRODUCT USED FOR UNKNOWN INDICATION
     Dosage: 100 MILLIGRAM, BID
     Route: 065

REACTIONS (2)
  - Product use in unapproved indication [Unknown]
  - Seizure [Not Recovered/Not Resolved]

NARRATIVE: CASE EVENT DATE: 20200928
